FAERS Safety Report 24402174 (Version 1)
Quarter: 2024Q4

REPORT INFORMATION
  Report Type: Other
  Country: US (occurrence: US)
  Receive Date: 20241007
  Receipt Date: 20241007
  Transmission Date: 20250115
  Serious: Yes (Hospitalization, Other)
  Sender: INTERCEPT PHARMACEUTICALS
  Company Number: US-INTERCEPT-PM2024001948

PATIENT
  Age: 80 Year
  Sex: Female
  Weight: 77.098 kg

DRUGS (2)
  1. OCALIVA [Suspect]
     Active Substance: OBETICHOLIC ACID
     Indication: Primary biliary cholangitis
     Dosage: 10 MILLIGRAM, QD
     Route: 048
     Dates: start: 20210325
  2. OCALIVA [Suspect]
     Active Substance: OBETICHOLIC ACID
     Dosage: 20 MG (2 PILLS OF 10MG), QD
     Route: 048
     Dates: start: 202409, end: 202409

REACTIONS (4)
  - Dyspnoea [Not Recovered/Not Resolved]
  - Acute cardiac event [Not Recovered/Not Resolved]
  - Extra dose administered [Recovered/Resolved]
  - Therapy interrupted [Not Recovered/Not Resolved]

NARRATIVE: CASE EVENT DATE: 20240901
